FAERS Safety Report 20748700 (Version 1)
Quarter: 2022Q2

REPORT INFORMATION
  Report Type: Spontaneous
  Country: FR (occurrence: FR)
  Receive Date: 20220426
  Receipt Date: 20220426
  Transmission Date: 20220720
  Serious: Yes (Death, Other)
  Sender: FDA-Public Use
  Company Number: FR-SUN PHARMACEUTICAL INDUSTRIES LTD-2022R1-333914

PATIENT
  Age: 11 Month
  Sex: Male

DRUGS (1)
  1. TRAMADOL [Suspect]
     Active Substance: TRAMADOL
     Indication: Product used for unknown indication
     Dosage: UNK
     Route: 065

REACTIONS (6)
  - Sudden infant death syndrome [Fatal]
  - Accidental poisoning [Fatal]
  - Respiratory depression [Fatal]
  - Coma [Fatal]
  - Seizure [Fatal]
  - Cardiac disorder [Fatal]
